FAERS Safety Report 4550544-7 (Version None)
Quarter: 2004Q4

REPORT INFORMATION
  Report Type: 
  Country: None (occurrence: None)
  Receive Date: 20041227
  Receipt Date: 20041123
  Transmission Date: 20050328
  Serious: No
  Sender: FDA-Public Use
  Company Number: 04P-163-0281365-00

PATIENT
  Age: 66 Year
  Sex: Male
  Weight: 136.4 kg

DRUGS (6)
  1. HUMIRA [Suspect]
     Indication: RHEUMATOID ARTHRITIS
     Dosage: 40 MG 1 IN 2 WK SUBCUTANEOUS
     Route: 058
     Dates: start: 20030701
  2. METHOTREXATE SODIUM [Concomitant]
  3. METOPROLOL [Concomitant]
  4. FOLIC ACID [Concomitant]
  5. FINASTERIDE [Concomitant]
  6. FLOMAX [Concomitant]

REACTIONS (1)
  - SINUSITIS [None]
